FAERS Safety Report 18482313 (Version 1)
Quarter: 2020Q4

REPORT INFORMATION
  Report Type: Other
  Country: CA (occurrence: CA)
  Receive Date: 20201110
  Receipt Date: 20201110
  Transmission Date: 20210114
  Serious: Yes (Other)
  Sender: FDA-Public Use
  Company Number: CA-CELLTRION INC.-2020CA030563

PATIENT

DRUGS (13)
  1. CALCIUM [Concomitant]
     Active Substance: CALCIUM
  2. RITUXIMAB (UNKNOWN) [Suspect]
     Active Substance: RITUXIMAB
     Indication: MYASTHENIA GRAVIS
     Route: 065
  3. HYDROCHLOROTHIAZIDE. [Concomitant]
     Active Substance: HYDROCHLOROTHIAZIDE
  4. TACROLIMUS. [Concomitant]
     Active Substance: TACROLIMUS
     Dosage: 1.0 MILLIGRAM, 2 EVERY 1 DAY
     Route: 065
  5. MORPHINE [Concomitant]
     Active Substance: MORPHINE
  6. MYCOPHENOLATE MOFETIL. [Concomitant]
     Active Substance: MYCOPHENOLATE MOFETIL
     Dosage: UNK
  7. MYCOPHENOLATE MOFETIL. [Concomitant]
     Active Substance: MYCOPHENOLATE MOFETIL
     Indication: MYASTHENIA GRAVIS
     Dosage: 1250.0 MILLIGRAM, 2 EVERY 1 DAY
     Route: 065
  8. RAMIPRIL. [Concomitant]
     Active Substance: RAMIPRIL
  9. RANITIDINE. [Concomitant]
     Active Substance: RANITIDINE
     Dosage: 150.0 MILLIGRAM, 2 EVERY 1 DAY
     Route: 065
  10. ZOLEDRONIC ACID [Concomitant]
     Active Substance: ZOLEDRONIC ACID
  11. PREDNISONE. [Concomitant]
     Active Substance: PREDNISONE
     Dosage: 30.0 MILLIGRAM, 1 EVERY 1 DAY
     Route: 065
  12. IMMUNOGLOBULIN HUMAN [Concomitant]
     Active Substance: HUMAN IMMUNOGLOBULIN G
     Dosage: 1 EVERY 4 WEEKS
     Route: 065
  13. MESTINON [Concomitant]
     Active Substance: PYRIDOSTIGMINE BROMIDE
     Dosage: 60.0 MILLIGRAM, 3 EVERY 1 DAY
     Route: 065

REACTIONS (20)
  - Lung hyperinflation [Unknown]
  - Haemoglobin decreased [Unknown]
  - Dysarthria [Unknown]
  - Haematocrit decreased [Unknown]
  - Ocular hyperaemia [Unknown]
  - Atelectasis [Unknown]
  - Fat tissue increased [Unknown]
  - Muscle contractions involuntary [Unknown]
  - Off label use [Unknown]
  - Low density lipoprotein increased [Unknown]
  - Blood cholesterol increased [Unknown]
  - Fatigue [Unknown]
  - Blood alkaline phosphatase decreased [Unknown]
  - Facial paresis [Unknown]
  - Diarrhoea [Unknown]
  - Hyperacusis [Unknown]
  - Intentional product use issue [Unknown]
  - Blood chloride decreased [Unknown]
  - Diplopia [Unknown]
  - Influenza like illness [Unknown]
